FAERS Safety Report 9435296 (Version 1)
Quarter: 2013Q3

REPORT INFORMATION
  Report Type: Spontaneous
  Country: AU (occurrence: None)
  Receive Date: 20130730
  Receipt Date: 20130730
  Transmission Date: 20140515
  Serious: Yes (Other)
  Sender: FDA-Public Use
  Company Number: 2013AP006871

PATIENT
  Age: 21 Year
  Sex: Male

DRUGS (2)
  1. AMOXICILLIN (AMOXICILLIN) [Suspect]
     Indication: UPPER RESPIRATORY TRACT INFECTION
  2. ESCITALOPRAM (ESCITALOPRAM) [Suspect]

REACTIONS (3)
  - Purpura fulminans [None]
  - Skin haemorrhage [None]
  - Epidermal necrosis [None]
